FAERS Safety Report 25554941 (Version 1)
Quarter: 2025Q3

REPORT INFORMATION
  Report Type: Spontaneous
  Country: US (occurrence: US)
  Receive Date: 20250715
  Receipt Date: 20250715
  Transmission Date: 20251020
  Serious: Yes (Other)
  Sender: CIPLA
  Company Number: US-CIPLA (EU) LIMITED-2025US08646

PATIENT

DRUGS (50)
  1. LENALIDOMIDE [Suspect]
     Active Substance: LENALIDOMIDE
     Indication: Plasma cell myeloma
     Dosage: 10 MILLIGRAM, QD (DAILY)
     Route: 048
     Dates: start: 20250612
  2. LENALIDOMIDE [Suspect]
     Active Substance: LENALIDOMIDE
     Dosage: 10 MILLIGRAM, QD (DAILY)-1 CAPSULE BY MOUTH ONCE DAILY FOR 28 DAYS
     Route: 048
     Dates: start: 20250702, end: 2025
  3. REVLIMID [Concomitant]
     Active Substance: LENALIDOMIDE
     Indication: Product used for unknown indication
     Dosage: 10 MILLIGRAM, QD (FOR 28 DAYS)
     Route: 048
  4. LENALIDOMIDE AUROBINDO [Concomitant]
     Indication: Product used for unknown indication
     Dosage: 10 MILLIGRAM, QD (FOR 28 DAYS)
     Route: 048
  5. LENALIDOMIDE AUROBINDO [Concomitant]
     Dosage: 10 MILLIGRAM, QD (FOR 28 DAYS)
     Route: 048
  6. LENALIDOMIDE AUROBINDO [Concomitant]
     Dosage: 10 MILLIGRAM, QD
     Route: 048
  7. LENALIDOMIDE AUROBINDO [Concomitant]
     Dosage: 10 MILLIGRAM, QD
     Route: 048
  8. LENALIDOMIDE AUROBINDO [Concomitant]
     Dosage: 10 MILLIGRAM, QD (FOR 28 DAYS)
     Route: 048
  9. LENALIDOMIDE AUROBINDO [Concomitant]
     Dosage: 10 MILLIGRAM, QD (FOR 28 DAYS)
     Route: 048
  10. LENALIDOMIDE AUROBINDO [Concomitant]
     Dosage: 10 MILLIGRAM, QD (FOR 28 DAYS)
     Route: 048
  11. LENALIDOMIDE AUROBINDO [Concomitant]
     Dosage: 10 MILLIGRAM, QD (FOR 28 DAYS)
     Route: 048
  12. LENALIDOMIDE AUROBINDO [Concomitant]
     Dosage: 10 MILLIGRAM, QD (FOR 28 DAYS)
     Route: 048
  13. LENALIDOMIDE AUROBINDO [Concomitant]
     Dosage: 10 MILLIGRAM, QD (FOR 28 DAYS)
     Route: 048
  14. LENALIDOMIDE AUROBINDO [Concomitant]
     Dosage: 10 MILLIGRAM, QD (FOR 28 DAYS)
     Route: 048
  15. LENALIDOMIDE AUROBINDO [Concomitant]
     Dosage: 10 MILLIGRAM, QD (FOR 28 DAYS)
     Route: 048
  16. LENALIDOMIDE AUROBINDO [Concomitant]
     Dosage: 10 MILLIGRAM, QD (FOR 28 DAYS)
     Route: 048
  17. LENALIDOMIDE AUROBINDO [Concomitant]
     Dosage: 10 MILLIGRAM, QD (FOR 28 DAYS)
     Route: 048
  18. LENALIDOMIDE AUROBINDO [Concomitant]
     Dosage: 10 MILLIGRAM, QD (FOR 28 DAYS OF EACH 28 DAY CYCLE)
     Route: 048
  19. LENALIDOMIDE AUROBINDO [Concomitant]
     Dosage: 10 MILLIGRAM, QD (FOR 28 DAYS OF EACH 28 DAY CYCLE)
     Route: 048
  20. LENALIDOMIDE AUROBINDO [Concomitant]
     Dosage: 10 MILLIGRAM, QD (FOR 28 DAYS OF EACH 28 DAY CYCLE)
     Route: 048
  21. LENALIDOMIDE AUROBINDO [Concomitant]
     Dosage: 10 MILLIGRAM, QD (FOR 28 DAYS OF EACH 28 DAY CYCLE)
     Route: 048
  22. LENALIDOMIDE AUROBINDO [Concomitant]
     Dosage: 10 MILLIGRAM, QD (FOR 28 DAYS OF EACH 28 DAY CYCLE)
     Route: 048
  23. LENALIDOMIDE AUROBINDO [Concomitant]
     Dosage: 10 MILLIGRAM, QD (FOR 28 DAYS OF EACH 28 DAY CYCLE)
     Route: 048
  24. LENALIDOMIDE AUROBINDO [Concomitant]
     Dosage: 10 MILLIGRAM, QD (FOR 28 DAYS OF EACH 28 DAY CYCLE)
     Route: 048
  25. LENALIDOMIDE AUROBINDO [Concomitant]
     Dosage: 10 MILLIGRAM, QD (FOR 28 DAYS OF EACH 28 DAY CYCLE)
     Route: 048
  26. LENALIDOMIDE AUROBINDO [Concomitant]
     Dosage: 10 MILLIGRAM, QD (FOR 28 DAYS OF EACH 28 DAY CYCLE)
     Route: 048
  27. LENALIDOMIDE AUROBINDO [Concomitant]
     Dosage: 10 MILLIGRAM, QD (FOR 28 DAYS OF EACH 28 DAY CYCLE)
     Route: 048
  28. LENALIDOMIDE AUROBINDO [Concomitant]
     Dosage: 10 MILLIGRAM, QD (FOR 28 DAYS OF EACH 28 DAY CYCLE)
     Route: 048
  29. LENALIDOMIDE AUROBINDO [Concomitant]
     Dosage: 10 MILLIGRAM, QD (FOR 28 DAYS OF EACH 28 DAY CYCLE)
     Route: 048
  30. SIMVASTATIN [Concomitant]
     Active Substance: SIMVASTATIN
     Indication: Product used for unknown indication
     Route: 048
  31. SIMVASTATIN [Concomitant]
     Active Substance: SIMVASTATIN
     Route: 065
  32. DULERA [Concomitant]
     Active Substance: FORMOTEROL FUMARATE DIHYDRATE\MOMETASONE FUROATE
     Indication: Product used for unknown indication
     Route: 065
  33. IMODIUM [Concomitant]
     Active Substance: LOPERAMIDE HYDROCHLORIDE
     Indication: Product used for unknown indication
     Route: 065
  34. VITAMIN B12 [Concomitant]
     Active Substance: CYANOCOBALAMIN
     Indication: Product used for unknown indication
     Route: 065
  35. FOLIC ACID [Concomitant]
     Active Substance: FOLIC ACID
     Indication: Product used for unknown indication
     Route: 048
  36. FOLIC ACID [Concomitant]
     Active Substance: FOLIC ACID
     Route: 048
  37. ACETAMINOPHEN [Concomitant]
     Active Substance: ACETAMINOPHEN
     Indication: Product used for unknown indication
     Route: 065
  38. ALBUTEROL SULFATE [Concomitant]
     Active Substance: ALBUTEROL SULFATE
     Indication: Product used for unknown indication
     Route: 065
  39. PROMETHAZINE HYDROCHLORIDE [Concomitant]
     Active Substance: PROMETHAZINE HYDROCHLORIDE
     Indication: Product used for unknown indication
     Route: 065
  40. LISINOPRIL [Concomitant]
     Active Substance: LISINOPRIL
     Indication: Product used for unknown indication
     Route: 065
  41. ONDANSETRON HYDROCHLORIDE [Concomitant]
     Active Substance: ONDANSETRON HYDROCHLORIDE
     Indication: Product used for unknown indication
     Route: 065
  42. TOPIRAMATE [Concomitant]
     Active Substance: TOPIRAMATE
     Indication: Product used for unknown indication
     Route: 065
  43. METFORMIN HYDROCHLORIDE [Concomitant]
     Active Substance: METFORMIN HYDROCHLORIDE
     Indication: Product used for unknown indication
     Route: 065
  44. DICYCLOMINE [Concomitant]
     Active Substance: DICYCLOMINE HYDROCHLORIDE
     Indication: Product used for unknown indication
     Route: 065
  45. GLIMEPIRIDE [Concomitant]
     Active Substance: GLIMEPIRIDE
     Indication: Product used for unknown indication
     Route: 065
  46. ASPIRIN [Concomitant]
     Active Substance: ASPIRIN
     Indication: Product used for unknown indication
     Route: 065
  47. AMLODIPINE BESYLATE [Concomitant]
     Active Substance: AMLODIPINE BESYLATE
     Indication: Product used for unknown indication
     Route: 065
  48. DIPHENHYDRAMINE [Concomitant]
     Active Substance: DIPHENHYDRAMINE
     Indication: Product used for unknown indication
     Route: 065
  49. OXYCODONE AND ACETAMINOPHEN [Concomitant]
     Active Substance: ACETAMINOPHEN\OXYCODONE HYDROCHLORIDE
     Indication: Product used for unknown indication
     Route: 065
  50. FUROSEMIDE [Concomitant]
     Active Substance: FUROSEMIDE
     Indication: Product used for unknown indication
     Route: 065
     Dates: end: 2025

REACTIONS (1)
  - Thrombocytopenia [Recovering/Resolving]

NARRATIVE: CASE EVENT DATE: 20250612
